FAERS Safety Report 7194323-3 (Version None)
Quarter: 2010Q4

REPORT INFORMATION
  Report Type: 
  Country: None (occurrence: None)
  Receive Date: 20101223
  Receipt Date: 20101217
  Transmission Date: 20110411
  Serious: Yes (Hospitalization)
  Sender: FDA-Public Use
  Company Number: GB-TEVA-260772ISR

PATIENT
  Age: 84 Year
  Sex: Male

DRUGS (2)
  1. DICLOFENAC [Suspect]
     Indication: ANALGESIC THERAPY
     Route: 048
  2. DABIGATRAN [Suspect]
     Indication: THROMBOSIS PROPHYLAXIS
     Route: 048

REACTIONS (3)
  - DEEP VEIN THROMBOSIS [None]
  - PULMONARY EMBOLISM [None]
  - RECTAL HAEMORRHAGE [None]
